FAERS Safety Report 5841064-8 (Version None)
Quarter: 2008Q3

REPORT INFORMATION
  Report Type: 
  Country: None (occurrence: None)
  Receive Date: 20080811
  Receipt Date: 20080807
  Transmission Date: 20090109
  Serious: Yes (Hospitalization, Other)
  Sender: FDA-Public Use
  Company Number: FR-ABBOTT-08P-056-0466540-00

PATIENT
  Sex: Female

DRUGS (4)
  1. HUMIRA [Suspect]
     Indication: DRUG USE FOR UNKNOWN INDICATION
     Route: 058
     Dates: start: 20071101, end: 20080501
  2. METHOTREXATE [Suspect]
     Indication: DRUG USE FOR UNKNOWN INDICATION
     Dates: start: 20020201, end: 20080501
  3. METFORMIN HYDROCHLORIDE [Concomitant]
     Indication: DRUG USE FOR UNKNOWN INDICATION
  4. DIOVAN HCT [Concomitant]
     Indication: DRUG USE FOR UNKNOWN INDICATION
     Dosage: 160/25 MG

REACTIONS (9)
  - ABDOMINAL PAIN [None]
  - ANOREXIA [None]
  - HEADACHE [None]
  - IMMUNODEFICIENCY [None]
  - MENINGITIS [None]
  - NAUSEA [None]
  - PYREXIA [None]
  - VERTIGO [None]
  - WEIGHT DECREASED [None]
